FAERS Safety Report 6617804-7 (Version None)
Quarter: 2010Q1

REPORT INFORMATION
  Report Type: 
  Country: None (occurrence: None)
  Receive Date: 20100308
  Receipt Date: 20100225
  Transmission Date: 20100710
  Serious: Yes (Other)
  Sender: FDA-Public Use
  Company Number: US-AMGEN-TCS395350

PATIENT
  Sex: Female

DRUGS (1)
  1. ENBREL [Suspect]
     Indication: RHEUMATOID ARTHRITIS
     Route: 058
     Dates: start: 20060501

REACTIONS (4)
  - CONVULSION [None]
  - INTRACRANIAL ANEURYSM [None]
  - LYMPHOCYTE COUNT INCREASED [None]
  - NEUTROPHIL COUNT DECREASED [None]
